FAERS Safety Report 11294959 (Version 1)
Quarter: 2015Q3

REPORT INFORMATION
  Report Type: Spontaneous
  Country: US (occurrence: None)
  Receive Date: 20150722
  Receipt Date: 20150722
  Transmission Date: 20151125
  Serious: Yes (Other)
  Sender: FDA-Public Use
  Company Number: None

PATIENT
  Age: 52 Year
  Sex: Female
  Weight: 72.58 kg

DRUGS (5)
  1. PROPRANALOL [Concomitant]
  2. RIZATRIPTAN. [Suspect]
     Active Substance: RIZATRIPTAN
     Indication: MIGRAINE
     Dosage: 1 PILL ONSET OF HEADACHE TAKEN BY MOUTH
     Route: 048
     Dates: start: 20150322, end: 20150719
  3. VITAMIN E [Concomitant]
     Active Substance: .ALPHA.-TOCOPHEROL
  4. CALCIUM [Concomitant]
     Active Substance: CALCIUM
  5. VITAMON B COMPLEX [Concomitant]

REACTIONS (2)
  - Chest pain [None]
  - Adverse drug reaction [None]

NARRATIVE: CASE EVENT DATE: 20150719
